FAERS Safety Report 4393823-9 (Version None)
Quarter: 2004Q3

REPORT INFORMATION
  Report Type: 
  Country: None (occurrence: None)
  Receive Date: 20040707
  Receipt Date: 20040625
  Transmission Date: 20050211
  Serious: Yes (Life-Threatening, Hospitalization)
  Sender: FDA-Public Use
  Company Number: HQWYE733028JUN04

PATIENT
  Age: 88 Year
  Sex: Male

DRUGS (5)
  1. OXAZEPAM [Suspect]
     Indication: SLEEP DISORDER
     Dosage: 15 MG 1X PER 1 DAY
     Route: 048
     Dates: start: 20040302, end: 20040606
  2. OMEPRAZOLE [Suspect]
     Route: 048
     Dates: start: 20040302, end: 20040608
  3. CIPROXIME (CIPROFLOXACIN) [Suspect]
     Indication: URINARY TRACT INFECTION
     Dosage: 1000 MG 1X PER 1 DAY
     Route: 048
     Dates: start: 20040604, end: 20040607
  4. ACETAMINOPHEN [Suspect]
     Indication: PAIN
     Dosage: 1 GRAM WHEN NEEDED
     Route: 048
     Dates: start: 20040601, end: 20040608
  5. ISOSORBIDE DINITRATE [Suspect]
     Route: 048
     Dates: start: 20040201, end: 20040608

REACTIONS (1)
  - TOXIC EPIDERMAL NECROLYSIS [None]
